FAERS Safety Report 12114980 (Version 1)
Quarter: 2016Q1

REPORT INFORMATION
  Report Type: Report from Study
  Country: CA (occurrence: CA)
  Receive Date: 20160225
  Receipt Date: 20160225
  Transmission Date: 20160526
  Serious: Yes (Other)
  Sender: FDA-Public Use
  Company Number: CA-TAKEDA-2016MPI001228

PATIENT
  Age: 60 Year
  Sex: Male
  Weight: 62.2 kg

DRUGS (2)
  1. VELCADE [Suspect]
     Active Substance: BORTEZOMIB
     Indication: PRIMARY AMYLOIDOSIS
     Dosage: 1.3 MG/M2, UNK
     Route: 065
     Dates: start: 201509
  2. PROPRANOLOL [Concomitant]
     Active Substance: PROPRANOLOL\PROPRANOLOL HYDROCHLORIDE
     Indication: MIGRAINE
     Dosage: UNK
     Route: 065

REACTIONS (7)
  - Groin pain [Recovered/Resolved]
  - Chest pain [Recovered/Resolved]
  - Amyloidosis [Not Recovered/Not Resolved]
  - Migraine [Recovering/Resolving]
  - Off label use [Unknown]
  - Anxiety disorder [Not Recovered/Not Resolved]
  - Product use issue [Unknown]

NARRATIVE: CASE EVENT DATE: 201601
